FAERS Safety Report 7769516-4 (Version None)
Quarter: 2011Q3

REPORT INFORMATION
  Report Type: 
  Country: None (occurrence: None)
  Receive Date: 20110922
  Receipt Date: 20110321
  Transmission Date: 20111222
  Serious: No
  Sender: FDA-Public Use
  Company Number: US-ASTRAZENECA-2011SE15740

PATIENT
  Sex: Male

DRUGS (2)
  1. SEROQUEL [Suspect]
     Route: 048
  2. SEROQUEL [Suspect]
     Indication: BIPOLAR DISORDER
     Route: 048
     Dates: start: 20100101

REACTIONS (12)
  - NAUSEA [None]
  - PARAESTHESIA [None]
  - DEPRESSION [None]
  - ANGINA PECTORIS [None]
  - PARANOIA [None]
  - INCORRECT DOSE ADMINISTERED [None]
  - BLOOD GLUCOSE INCREASED [None]
  - DRY MOUTH [None]
  - WEIGHT INCREASED [None]
  - NO ADVERSE EVENT [None]
  - CONSTIPATION [None]
  - THERAPEUTIC RESPONSE UNEXPECTED [None]
